FAERS Safety Report 22324559 (Version 1)
Quarter: 2023Q2

REPORT INFORMATION
  Report Type: Spontaneous
  Country: US (occurrence: None)
  Receive Date: 20230514
  Receipt Date: 20230514
  Transmission Date: 20230722
  Serious: Yes (Disabling)
  Sender: FDA-Public Use
  Company Number: None

PATIENT
  Age: 46 Year
  Sex: Male
  Weight: 63 kg

DRUGS (1)
  1. ALLEGRA HIVES 24HR [Suspect]
     Active Substance: FEXOFENADINE HYDROCHLORIDE
     Indication: Multiple allergies
     Dates: start: 20230401, end: 20230511

REACTIONS (6)
  - Depressed mood [None]
  - Tearfulness [None]
  - Feeling of despair [None]
  - Anger [None]
  - Loss of libido [None]
  - Depression [None]

NARRATIVE: CASE EVENT DATE: 20230514
